FAERS Safety Report 8471744-X (Version None)
Quarter: 2012Q2

REPORT INFORMATION
  Report Type: 
  Country: None (occurrence: None)
  Receive Date: 20120627
  Receipt Date: 20100604
  Transmission Date: 20120825
  Serious: Yes (Other)
  Sender: FDA-Public Use
  Company Number: US-ROCHE-709677

PATIENT
  Sex: Female

DRUGS (3)
  1. ZOMETA [Concomitant]
  2. HERCEPTIN [Suspect]
     Indication: BREAST CANCER METASTATIC
     Route: 042
  3. NAVELBINE [Suspect]
     Indication: BREAST CANCER METASTATIC
     Dosage: THERAPY DATES REPOTED AS RECENTLY.
     Route: 065

REACTIONS (1)
  - BONE NEOPLASM MALIGNANT [None]
